FAERS Safety Report 21105188 (Version 2)
Quarter: 2022Q3

REPORT INFORMATION
  Report Type: Spontaneous
  Country: DO (occurrence: DO)
  Receive Date: 20220720
  Receipt Date: 20220901
  Transmission Date: 20221027
  Serious: Yes (Death)
  Sender: FDA-Public Use
  Company Number: DO-AMERICAN REGENT INC-2022002003

PATIENT
  Age: 67 Year
  Sex: Female

DRUGS (1)
  1. VENOFER [Suspect]
     Active Substance: IRON SUCROSE
     Indication: Iron deficiency
     Dosage: ADMINISTERED 2 AMPULES EVERY 48 HOURS. DILUTED IN 100 ML IN SALINE SOLUTION (200 MG, 2 IN 48 HR)

REACTIONS (2)
  - Thrombosis [Fatal]
  - Inappropriate schedule of product administration [Unknown]
